FAERS Safety Report 6620456-3 (Version None)
Quarter: 2010Q1

REPORT INFORMATION
  Report Type: 
  Country: None (occurrence: None)
  Receive Date: 20100308
  Receipt Date: 20100308
  Transmission Date: 20100710
  Serious: No
  Sender: FDA-Public Use
  Company Number: None

PATIENT
  Age: 65 Year
  Sex: Male

DRUGS (1)
  1. CLEOCIN HYDROCHLORIDE [Suspect]
     Indication: TOOTH INFECTION
     Dosage: 300MG FOUR TIMES DAILY PO
     Route: 048
     Dates: start: 20091228, end: 20100104

REACTIONS (2)
  - PRURITUS GENERALISED [None]
  - RASH GENERALISED [None]
